FAERS Safety Report 5780273-3 (Version None)
Quarter: 2008Q2

REPORT INFORMATION
  Report Type: 
  Country: None (occurrence: None)
  Receive Date: 20080620
  Receipt Date: 20080618
  Transmission Date: 20081010
  Serious: Yes (Death, Other)
  Sender: FDA-Public Use
  Company Number: PHHY2008BR07941

PATIENT
  Age: 9 Year
  Sex: Male

DRUGS (1)
  1. TEGRETOL [Suspect]
     Dosage: 14 TABLETS
     Dates: start: 20080513

REACTIONS (7)
  - CARDIO-RESPIRATORY ARREST [None]
  - CRYING [None]
  - DRUG TOXICITY [None]
  - INTENTIONAL OVERDOSE [None]
  - LOSS OF CONSCIOUSNESS [None]
  - SUICIDAL IDEATION [None]
  - VOMITING [None]
